FAERS Safety Report 5663832-8 (Version None)
Quarter: 2008Q1

REPORT INFORMATION
  Report Type: 
  Country: None (occurrence: None)
  Receive Date: 20080314
  Receipt Date: 20080310
  Transmission Date: 20080703
  Serious: Yes (Hospitalization, Other)
  Sender: FDA-Public Use
  Company Number: GB-RANBAXY-2008RR-12629

PATIENT

DRUGS (7)
  1. FLUOXETINE [Suspect]
     Indication: DEPRESSION
     Dosage: 20 MG, QD
     Route: 048
  2. HALOPERIDOL 2MG/ML PICATURI ORALE, SOLUTIE [Suspect]
     Dosage: 1.5 MG, QD
     Route: 048
  3. HALOPERIDOL 2MG/ML PICATURI ORALE, SOLUTIE [Suspect]
     Dosage: 2.5 MG, QD
     Route: 058
  4. CYCLIZINE [Suspect]
     Indication: ANTIEMETIC SUPPORTIVE CARE
     Dosage: 150 MG, QD
     Route: 058
  5. LEVOMEPROMAZIN COMPRIMATE 25MG [Suspect]
     Dosage: 6 MG, BID
     Route: 048
  6. OXYCODONE HCL [Concomitant]
     Dosage: 15 MG, UNK
  7. OXYCODONE HCL [Concomitant]
     Dosage: 20 MG, QD
     Route: 058

REACTIONS (2)
  - AKATHISIA [None]
  - DRUG INTERACTION [None]
